FAERS Safety Report 12233761 (Version 4)
Quarter: 2016Q2

REPORT INFORMATION
  Report Type: Report from Study
  Country: CA (occurrence: CA)
  Receive Date: 20160404
  Receipt Date: 20160422
  Transmission Date: 20160815
  Serious: Yes (Life-Threatening, Other)
  Sender: FDA-Public Use
  Company Number: CA-ROCHE-1733465

PATIENT
  Age: 60 Year
  Sex: Male
  Weight: 70 kg

DRUGS (8)
  1. NPH (INSULIN) [Concomitant]
     Dosage: (UNABLE TO STATE IF IT WAS STARTED BEFORE OR AFTER RITUXAN)
     Route: 065
  2. GLICLAZIDE [Concomitant]
     Active Substance: GLICLAZIDE
     Dosage: DECREASED IN MAR2016 DOSE R/T IMPAIRED KIDNEY FUNCTION (UNABLE TO STATE IF IT WAS STARTED BEFORE OR
     Route: 065
  3. PREDNISONE. [Concomitant]
     Active Substance: PREDNISONE
     Dosage: REASON UNKNOWN
     Route: 065
     Dates: start: 20160320
  4. RITUXAN [Suspect]
     Active Substance: RITUXIMAB
     Route: 042
     Dates: start: 20160415
  5. METFORMIN [Concomitant]
     Active Substance: METFORMIN HYDROCHLORIDE
     Dosage: LONGSTANDING (UNABLE TO STATE IF IT WAS STARTED BEFORE OR AFTER RITUXAN)
     Route: 065
  6. RITUXAN [Suspect]
     Active Substance: RITUXIMAB
     Indication: THROMBOTIC THROMBOCYTOPENIC PURPURA
     Dosage: STOP DATE UNKNOWN
     Route: 042
     Dates: start: 20131204
  7. CALCIUM CARBONATE. [Concomitant]
     Active Substance: CALCIUM CARBONATE
     Dosage: LONG STANDING (UNABLE TO STATE IF IT WAS STARTED BEFORE OR AFTER RITUXAN)
     Route: 065
  8. RANITIDINE. [Concomitant]
     Active Substance: RANITIDINE
     Dosage: FOR STOMACH PROTECTION
     Route: 065
     Dates: start: 20160320

REACTIONS (10)
  - Neuropathy peripheral [Unknown]
  - Myocardial infarction [Not Recovered/Not Resolved]
  - Thrombotic thrombocytopenic purpura [Not Recovered/Not Resolved]
  - Pruritus [Unknown]
  - Renal impairment [Unknown]
  - Diabetes mellitus [Unknown]
  - Insomnia [Unknown]
  - Nausea [Unknown]
  - Peripheral artery occlusion [Unknown]
  - Blood potassium decreased [Unknown]

NARRATIVE: CASE EVENT DATE: 201603
